FAERS Safety Report 8483661-X (Version None)
Quarter: 2012Q3

REPORT INFORMATION
  Report Type: 
  Country: None (occurrence: None)
  Receive Date: 20120703
  Receipt Date: 20120625
  Transmission Date: 20120928
  Serious: Yes (Hospitalization)
  Sender: FDA-Public Use
  Company Number: JP-AMGEN-JPNSP2012038017

PATIENT
  Age: 89 Year
  Sex: Male
  Weight: 47 kg

DRUGS (13)
  1. RANMARK [Suspect]
     Indication: METASTASES TO BONE
     Dosage: 120 MG, UNK
     Route: 058
     Dates: start: 20120525, end: 20120525
  2. URSO 250 [Concomitant]
     Route: 065
     Dates: start: 20120315
  3. MAGLAX [Concomitant]
     Dosage: 1DOSE:1
     Route: 065
     Dates: start: 20120521
  4. CALCIUM CARBONATE [Concomitant]
     Dosage: 1DOSE:1
     Route: 065
     Dates: start: 20120525, end: 20120606
  5. TRAMCET(TRAMADOL HYDROCHLORIDE_ACETAMINOPHEN COMBINED DRUG) [Concomitant]
     Route: 065
     Dates: start: 20120518, end: 20120614
  6. ETHINYL ESTRADIOL [Concomitant]
     Route: 065
     Dates: start: 20120216
  7. RABEPRAZOLE SODIUM [Concomitant]
     Dosage: 1DOSE:1
     Route: 065
     Dates: start: 20120601
  8. ZOLADEX [Concomitant]
     Route: 058
     Dates: start: 20090305
  9. CELEBREX [Concomitant]
     Route: 065
     Dates: start: 20120429, end: 20120607
  10. AMLODIPINE BESYLATE [Concomitant]
     Route: 065
     Dates: start: 20120511
  11. ALFAROL [Concomitant]
     Dosage: 1DOSE:1
     Route: 065
     Dates: start: 20120525, end: 20120606
  12. LASIX [Concomitant]
     Dosage: 1DOSE:1
     Route: 065
     Dates: start: 20120601
  13. DAI-KENCHU-TO [Concomitant]
     Dosage: 1DOSE:1
     Route: 065
     Dates: start: 20120601

REACTIONS (1)
  - DECREASED APPETITE [None]
